FAERS Safety Report 6536797-4 (Version None)
Quarter: 2010Q1

REPORT INFORMATION
  Report Type: 
  Country: None (occurrence: None)
  Receive Date: 20100113
  Receipt Date: 20100104
  Transmission Date: 20100710
  Serious: Yes (Death, Other)
  Sender: FDA-Public Use
  Company Number: US-PFIZER INC-2009232763

PATIENT
  Sex: Male
  Weight: 90.7 kg

DRUGS (14)
  1. LYRICA [Suspect]
     Indication: NERVE INJURY
     Dosage: 75 MG, 2X/DAY
     Route: 048
     Dates: start: 20080201
  2. LYRICA [Suspect]
     Indication: NEUROPATHY PERIPHERAL
  3. CYMBALTA [Suspect]
     Indication: DEPRESSION
     Dosage: UNK
  4. CYMBALTA [Suspect]
     Indication: NEURALGIA
  5. ALPRAZOLAM [Concomitant]
     Indication: ANXIETY
     Dosage: UNK MG, UNK
  6. DIGITEK [Concomitant]
     Indication: ATRIAL FIBRILLATION
     Dosage: UNK
  7. NEXIUM [Concomitant]
     Indication: GASTROOESOPHAGEAL REFLUX DISEASE
     Dosage: UNK
  8. FENOFIBRIC ACID [Concomitant]
     Indication: HIGH DENSITY LIPOPROTEIN DECREASED
     Dosage: UNK
  9. GLYBURIDE [Concomitant]
     Indication: DIABETES MELLITUS
     Dosage: UNK
  10. HYDROCODONE [Concomitant]
     Dosage: UNK
  11. LANTUS [Concomitant]
     Indication: DIABETES MELLITUS
     Dosage: UNK
  12. HUMALOG [Concomitant]
     Indication: DIABETES MELLITUS
     Dosage: UNK
  13. AVAPRO [Concomitant]
     Indication: HYPERTENSION
     Dosage: UNK
  14. WARFARIN [Concomitant]
     Indication: ATRIAL FIBRILLATION
     Dosage: UNK

REACTIONS (4)
  - DEATH [None]
  - MENISCUS LESION [None]
  - RASH MACULAR [None]
  - SQUAMOUS CELL CARCINOMA [None]
